FAERS Safety Report 8401057-3 (Version None)
Quarter: 2012Q2

REPORT INFORMATION
  Report Type: 
  Country: None (occurrence: None)
  Receive Date: 20120525
  Receipt Date: 20120518
  Transmission Date: 20120825
  Serious: Yes (Death)
  Sender: FDA-Public Use
  Company Number: DSA_57453_2012

PATIENT
  Sex: Male

DRUGS (4)
  1. XANAX [Concomitant]
  2. LEXAPRO [Concomitant]
  3. XENAZINE [Suspect]
     Indication: PRODUCT USED FOR UNKNOWN INDICATION
     Dosage: 12.5 MG, BID, ORAL
     Route: 048
  4. ARICEPT [Concomitant]

REACTIONS (1)
  - DEATH [None]
